FAERS Safety Report 18197529 (Version 2)
Quarter: 2021Q1

REPORT INFORMATION
  Report Type: Spontaneous
  Country: FR (occurrence: FR)
  Receive Date: 20200826
  Receipt Date: 20210120
  Transmission Date: 20210419
  Serious: Yes (Hospitalization, Other)
  Sender: FDA-Public Use
  Company Number: FR-BAXTER-2020BAX016911

PATIENT
  Age: 1 Year
  Sex: Female
  Weight: 14.1 kg

DRUGS (7)
  1. VINCRISTINE HOSPIRA [Suspect]
     Active Substance: VINCRISTINE
     Indication: RHABDOMYOSARCOMA
     Dosage: DOSE: 1 (UNITS NOT REPORTED) EVERY 1 WEEK
     Route: 042
     Dates: start: 20180214, end: 20180816
  2. UROMITEXAN 5 G/50 ML, SOLUTION INJECTABLE POUR PERFUSION EN FLACON [Suspect]
     Active Substance: MESNA
     Indication: CHEMOTHERAPY UROTHELIAL TOXICITY ATTENUATION
     Dosage: DOSE: 1 (UNITS NOT REPORTED) EVERY 1 WEEK
     Route: 042
     Dates: start: 20180214, end: 20180816
  3. COSMEGEN [Suspect]
     Active Substance: DACTINOMYCIN
     Indication: RHABDOMYOSARCOMA
     Dosage: DOSE: 1 (UNITS NOT REPORTED) EVERY 1 SECOND
     Route: 042
     Dates: start: 20180214, end: 20180816
  4. IFOSFAMIDE EG [Suspect]
     Active Substance: IFOSFAMIDE
     Indication: RHABDOMYOSARCOMA
     Dosage: DOSE: 1 (UNITS NOT REPORTED) EVERY 1 WEEK
     Route: 042
     Dates: start: 20180214, end: 20180816
  5. NAVELBINE [Suspect]
     Active Substance: VINORELBINE TARTRATE
     Indication: RHABDOMYOSARCOMA
     Dosage: 7.4 MG, UNKNOWN
     Route: 042
     Dates: start: 20180914
  6. NAVELBINE [Suspect]
     Active Substance: VINORELBINE TARTRATE
     Indication: OFF LABEL USE
     Route: 065
  7. ENDOXAN 50 MG, COMPRIME ENROBE [Suspect]
     Active Substance: CYCLOPHOSPHAMIDE
     Indication: RHABDOMYOSARCOMA
     Dosage: 7MG. UNKNOWN
     Route: 048
     Dates: start: 20180914

REACTIONS (4)
  - Off label use [Unknown]
  - Product use in unapproved indication [Unknown]
  - Product use issue [Unknown]
  - Renal tubular disorder [Not Recovered/Not Resolved]

NARRATIVE: CASE EVENT DATE: 20190208
